FAERS Safety Report 8378155-6 (Version None)
Quarter: 2012Q2

REPORT INFORMATION
  Report Type: 
  Country: None (occurrence: None)
  Receive Date: 20120522
  Receipt Date: 20120521
  Transmission Date: 20120825
  Serious: No
  Sender: FDA-Public Use
  Company Number: US-PFIZER INC-2012122959

PATIENT
  Sex: Female
  Weight: 99.773 kg

DRUGS (6)
  1. INDERAL [Concomitant]
     Indication: ESSENTIAL TREMOR
     Dosage: UNK
  2. LEVOTHYROXINE [Concomitant]
     Indication: HYPOTHYROIDISM
     Dosage: UNK
  3. EFFEXOR XR [Suspect]
     Indication: ANXIETY
     Dosage: 150 MG, 1X/DAY
     Route: 048
     Dates: start: 20110301, end: 20120517
  4. XANAX [Suspect]
     Indication: ANXIETY
     Dosage: UNK
  5. EFFEXOR XR [Suspect]
     Indication: POST-TRAUMATIC STRESS DISORDER
     Dosage: 75 MG, 1X/DAY
     Route: 048
     Dates: end: 20110301
  6. EFFEXOR XR [Suspect]
     Indication: DEPRESSION

REACTIONS (6)
  - PAIN [None]
  - FEELING ABNORMAL [None]
  - ANGER [None]
  - DIARRHOEA [None]
  - ACTIVITIES OF DAILY LIVING IMPAIRED [None]
  - MALAISE [None]
